FAERS Safety Report 10749310 (Version 5)
Quarter: 2015Q2

REPORT INFORMATION
  Report Type: Spontaneous
  Country: US (occurrence: US)
  Receive Date: 20150129
  Receipt Date: 20150427
  Transmission Date: 20150821
  Serious: Yes (Other)
  Sender: FDA-Public Use
  Company Number: US-UNITED THERAPEUTICS-UNT-2015-000811

PATIENT
  Age: 62 Year
  Sex: Male

DRUGS (5)
  1. ORENITRAM [Suspect]
     Active Substance: TREPROSTINIL
     Indication: PULMONARY HYPERTENSION
     Dosage: 5 MG, BID
     Route: 048
     Dates: start: 20141101
  2. ADEMPAS [Concomitant]
     Active Substance: RIOCIGUAT
     Indication: PRODUCT USED FOR UNKNOWN INDICATION
  3. WARFARIN [Concomitant]
     Active Substance: WARFARIN
     Indication: PRODUCT USED FOR UNKNOWN INDICATION
  4. ORENITRAM [Suspect]
     Active Substance: TREPROSTINIL
     Indication: PULMONARY ARTERIAL HYPERTENSION
     Dosage: 3.5 MG, BID
     Route: 048
     Dates: start: 20141024
  5. ORENITRAM [Suspect]
     Active Substance: TREPROSTINIL
     Dosage: 10 MG, BID
     Route: 048

REACTIONS (6)
  - Cellulitis [Recovered/Resolved]
  - Oedema [Not Recovered/Not Resolved]
  - Blister [Unknown]
  - Thrombosis [Recovered/Resolved]
  - Weight increased [Recovered/Resolved]
  - Oedema peripheral [Not Recovered/Not Resolved]

NARRATIVE: CASE EVENT DATE: 201412
